FAERS Safety Report 10618556 (Version 1)
Quarter: 2014Q4

REPORT INFORMATION
  Report Type: Spontaneous
  Country: SE (occurrence: SE)
  Receive Date: 20141202
  Receipt Date: 20141202
  Transmission Date: 20150529
  Serious: Yes (Disabling)
  Sender: FDA-Public Use
  Company Number: SE-RANBAXY-2014RR-89439

PATIENT
  Age: 76 Year
  Sex: Male

DRUGS (1)
  1. SIMVASTATIN. [Suspect]
     Active Substance: SIMVASTATIN
     Indication: PRODUCT USED FOR UNKNOWN INDICATION
     Dosage: UNK
     Route: 065

REACTIONS (3)
  - Lung disorder [Recovered/Resolved with Sequelae]
  - Cough [Recovered/Resolved with Sequelae]
  - Pleurisy [Recovered/Resolved with Sequelae]
